FAERS Safety Report 24261952 (Version 1)
Quarter: 2024Q3

REPORT INFORMATION
  Report Type: Spontaneous
  Country: US (occurrence: US)
  Receive Date: 20240829
  Receipt Date: 20240829
  Transmission Date: 20241017
  Serious: Yes (Hospitalization)
  Sender: BRISTOL MYERS SQUIBB
  Company Number: US-BRISTOL-MYERS SQUIBB COMPANY-2024-136792

PATIENT
  Age: 74 Year
  Sex: Male
  Weight: 68.9 kg

DRUGS (9)
  1. REVLIMID [Suspect]
     Active Substance: LENALIDOMIDE
     Indication: Plasma cell myeloma recurrent
     Dates: start: 20231121
  2. ACYCLOVIR [Concomitant]
     Active Substance: ACYCLOVIR
  3. AMLODIPINE [Concomitant]
     Active Substance: AMLODIPINE BESYLATE
  4. DEXAMETHASONE [Concomitant]
     Active Substance: DEXAMETHASONE
  5. ELIQUIS [Concomitant]
     Active Substance: APIXABAN
  6. FERROUS SULFATE [Concomitant]
     Active Substance: FERROUS SULFATE
  7. GABAPENTIN [Concomitant]
     Active Substance: GABAPENTIN
  8. OXYCODONE [Concomitant]
     Active Substance: OXYCODONE
  9. ROSUVASTATIN [Concomitant]
     Active Substance: ROSUVASTATIN\ROSUVASTATIN CALCIUM

REACTIONS (1)
  - Infection [Unknown]

NARRATIVE: CASE EVENT DATE: 20240813
